FAERS Safety Report 16139139 (Version 6)
Quarter: 2020Q2

REPORT INFORMATION
  Report Type: Report from Study
  Country: US (occurrence: US)
  Receive Date: 20190330
  Receipt Date: 20200521
  Transmission Date: 20200713
  Serious: Yes (Other)
  Sender: FDA-Public Use
  Company Number: PHHY2018US190100

PATIENT
  Age: 29 Year
  Sex: Female

DRUGS (3)
  1. KETOROLAC [Concomitant]
     Active Substance: KETOROLAC TROMETHAMINE
     Indication: PAIN
     Dosage: UNK
     Route: 065
     Dates: start: 20191004, end: 20191004
  2. GILENYA [Suspect]
     Active Substance: FINGOLIMOD HYDROCHLORIDE
     Indication: MULTIPLE SCLEROSIS
     Dosage: UNK, QD
     Route: 048
  3. ONDANSETRON [Concomitant]
     Active Substance: ONDANSETRON
     Indication: PROPHYLAXIS
     Dosage: UNK
     Route: 065
     Dates: start: 20191004, end: 20191004

REACTIONS (7)
  - Optic atrophy [Recovered/Resolved]
  - Melanocytic naevus [Not Recovered/Not Resolved]
  - Arthralgia [Recovered/Resolved]
  - Strabismus [Unknown]
  - Lymphopenia [Recovered/Resolved]
  - Lymphocyte count decreased [Unknown]
  - Muscle strain [Recovered/Resolved]

NARRATIVE: CASE EVENT DATE: 20180813
